FAERS Safety Report 4950329-3 (Version None)
Quarter: 2006Q1

REPORT INFORMATION
  Report Type: 
  Country: None (occurrence: None)
  Receive Date: 20060315
  Receipt Date: 20060228
  Transmission Date: 20060701
  Serious: Yes (Hospitalization)
  Sender: FDA-Public Use
  Company Number: PHBS2005JP18918

PATIENT
  Age: 76 Year
  Sex: Male
  Weight: 65.0005 kg

DRUGS (10)
  1. VISUDYNE [Suspect]
     Indication: MACULAR DEGENERATION
     Dates: start: 20051219, end: 20051219
  2. CEFZON [Concomitant]
  3. COCARL [Concomitant]
  4. PENTCILLIN [Concomitant]
  5. WARFARIN [Concomitant]
  6. LASIX [Concomitant]
  7. ASPIRIN [Concomitant]
  8. ZYLORIC [Concomitant]
  9. PLETAL [Concomitant]
  10. PARIET [Concomitant]

REACTIONS (1)
  - STREPTOCOCCAL SEPSIS [None]
